FAERS Safety Report 6757982-2 (Version None)
Quarter: 2010Q2

REPORT INFORMATION
  Report Type: 
  Country: None (occurrence: None)
  Receive Date: 20100607
  Receipt Date: 20100528
  Transmission Date: 20101027
  Serious: Yes (Other)
  Sender: FDA-Public Use
  Company Number: FR-ABBOTT-10P-056-0646554-00

PATIENT
  Age: 44 Year
  Sex: Female

DRUGS (1)
  1. MONOZECLAR [Suspect]
     Indication: SINUSITIS
     Route: 048
     Dates: start: 20100315, end: 20100315

REACTIONS (6)
  - BACK PAIN [None]
  - DYSPEPSIA [None]
  - FATIGUE [None]
  - PRURITUS [None]
  - PURPURA [None]
  - VASCULITIS [None]
